FAERS Safety Report 7027108-9 (Version None)
Quarter: 2010Q4

REPORT INFORMATION
  Report Type: 
  Country: None (occurrence: None)
  Receive Date: 20101001
  Receipt Date: 20101001
  Transmission Date: 20110411
  Serious: Yes (Other)
  Sender: FDA-Public Use
  Company Number: None

PATIENT
  Age: 48 Year
  Sex: Female
  Weight: 63.6 kg

DRUGS (3)
  1. CARISOPRODOL [Suspect]
     Indication: INTERVERTEBRAL DISC DEGENERATION
     Dosage: 350 MG Q.I.D P.O.
     Route: 048
     Dates: start: 20100802, end: 20100814
  2. CARISOPRODOL [Suspect]
     Indication: MUSCLE SPASMS
     Dosage: 350 MG Q.I.D P.O.
     Route: 048
     Dates: start: 20100802, end: 20100814
  3. CARISOPRODOL [Suspect]
     Indication: PAIN
     Dosage: 350 MG Q.I.D P.O.
     Route: 048
     Dates: start: 20100802, end: 20100814

REACTIONS (5)
  - DRUG EFFECT DECREASED [None]
  - PRODUCT SUBSTITUTION ISSUE [None]
  - PURPURA [None]
  - REACTION TO DRUG EXCIPIENTS [None]
  - SCAR [None]
